FAERS Safety Report 7617640-9 (Version None)
Quarter: 2011Q3

REPORT INFORMATION
  Report Type: 
  Country: None (occurrence: None)
  Receive Date: 20110718
  Receipt Date: 20110708
  Transmission Date: 20111222
  Serious: Yes (Hospitalization)
  Sender: FDA-Public Use
  Company Number: CH-JNJFOC-20110704148

PATIENT
  Age: 77 Year
  Sex: Male
  Weight: 80 kg

DRUGS (6)
  1. ASPIRIN [Concomitant]
  2. LERCANIDIPINE [Suspect]
     Indication: ESSENTIAL HYPERTENSION
     Route: 048
     Dates: end: 20110414
  3. XARELTO [Suspect]
     Indication: KNEE ARTHROPLASTY
     Route: 048
     Dates: end: 20110414
  4. ATORVASTATIN [Suspect]
     Indication: ILL-DEFINED DISORDER
     Route: 048
     Dates: end: 20110414
  5. IRFEN [Concomitant]
  6. ACETAMINOPHEN [Suspect]
     Indication: PAIN
     Route: 048
     Dates: start: 20110323, end: 20110414

REACTIONS (6)
  - JAUNDICE [None]
  - ALANINE AMINOTRANSFERASE INCREASED [None]
  - BLOOD LACTATE DEHYDROGENASE INCREASED [None]
  - GAMMA-GLUTAMYLTRANSFERASE INCREASED [None]
  - ASPARTATE AMINOTRANSFERASE INCREASED [None]
  - BLOOD ALKALINE PHOSPHATASE INCREASED [None]
